FAERS Safety Report 8116816-4 (Version None)
Quarter: 2012Q1

REPORT INFORMATION
  Report Type: 
  Country: None (occurrence: None)
  Receive Date: 20120131
  Receipt Date: 20120118
  Transmission Date: 20120608
  Serious: Yes (Other)
  Sender: FDA-Public Use
  Company Number: DSJ-2011-21859

PATIENT
  Age: 68 Year
  Sex: Female

DRUGS (3)
  1. BENICAR [Suspect]
     Indication: HYPERTENSION
     Dosage: 40 MG (40 MG,1 IN 1 D),PER ORAL ; 20 MG (40 MG,1 IN 1 D),PER ORAL ; 20 MG (20 MG,1 IN 1 D)PER ORAL
     Route: 048
     Dates: start: 20100101, end: 20110101
  2. BENICAR [Suspect]
     Indication: HYPERTENSION
     Dosage: 40 MG (40 MG,1 IN 1 D),PER ORAL ; 20 MG (40 MG,1 IN 1 D),PER ORAL ; 20 MG (20 MG,1 IN 1 D)PER ORAL
     Route: 048
     Dates: start: 20110101, end: 20110901
  3. BENICAR [Suspect]
     Indication: HYPERTENSION
     Dosage: 40 MG (40 MG,1 IN 1 D),PER ORAL ; 20 MG (40 MG,1 IN 1 D),PER ORAL ; 20 MG (20 MG,1 IN 1 D)PER ORAL
     Route: 048
     Dates: start: 20110901

REACTIONS (2)
  - HYPOTENSION [None]
  - DRUG ADMINISTRATION ERROR [None]
